FAERS Safety Report 7510173-X (Version None)
Quarter: 2011Q2

REPORT INFORMATION
  Report Type: 
  Country: None (occurrence: None)
  Receive Date: 20110527
  Receipt Date: 20110520
  Transmission Date: 20111010
  Serious: Yes (Other)
  Sender: FDA-Public Use
  Company Number: CH-ABBOTT-11P-151-0719840-00

PATIENT
  Age: 45 Year
  Sex: Female

DRUGS (2)
  1. CALCIMAGON [Concomitant]
     Indication: PRODUCT USED FOR UNKNOWN INDICATION
  2. LEUPROLIDE ACETATE [Suspect]
     Indication: BREAST CANCER
     Dates: start: 20100414, end: 20100625

REACTIONS (3)
  - DRUG EFFECT DECREASED [None]
  - INJECTION SITE ERYTHEMA [None]
  - NEOPLASM PROGRESSION [None]
